FAERS Safety Report 10744555 (Version 1)
Quarter: 2015Q1

REPORT INFORMATION
  Report Type: Not Available
  Country: FR (occurrence: FR)
  Receive Date: 20150128
  Receipt Date: 20150128
  Transmission Date: 20150721
  Serious: Yes (Hospitalization)
  Sender: FDA-Public Use
  Company Number: FR-MUNDIPHARMA DS AND PHARMACOVIGILANCE-GBR-2015-0025090

PATIENT
  Age: 70 Year
  Sex: Male

DRUGS (14)
  1. MOPRAL                             /00661201/ [Concomitant]
     Active Substance: OMEPRAZOLE SODIUM
  2. LEVOTHYROX [Concomitant]
     Active Substance: LEVOTHYROXINE
     Dosage: 75 MCG, UNK
  3. PROZAC [Concomitant]
     Active Substance: FLUOXETINE HYDROCHLORIDE
  4. ELISOR [Concomitant]
     Active Substance: PRAVASTATIN SODIUM
  5. IXPRIM [Suspect]
     Active Substance: ACETAMINOPHEN\TRAMADOL HYDROCHLORIDE
     Indication: NEURALGIA
     Dosage: 1 DF, 6 X DAILY
     Route: 048
     Dates: start: 20140916, end: 20140930
  6. VERSATIS [Concomitant]
     Active Substance: LIDOCAINE
     Dosage: 5 %, UNK
  7. DAONIL [Concomitant]
     Active Substance: GLYBURIDE
  8. MICARDIS [Concomitant]
     Active Substance: TELMISARTAN
  9. TIORFAN [Concomitant]
     Active Substance: RACECADOTRIL
  10. OXYNORM 5 MG, GELULE [Suspect]
     Active Substance: OXYCODONE HYDROCHLORIDE
     Indication: NEURALGIA
     Dosage: 5 MG, TID
     Route: 048
     Dates: start: 20140916, end: 20140930
  11. BACLOFEN AL [Suspect]
     Active Substance: BACLOFEN
     Indication: NEURALGIA
     Dosage: 1 DF, 6 X DAILY
     Route: 048
     Dates: start: 20140916, end: 20140930
  12. PREVISCAN                          /00261401/ [Concomitant]
     Active Substance: PENTOXIFYLLINE
     Dosage: 20 MG, UNK
  13. LASILIX                            /00032601/ [Concomitant]
     Active Substance: FUROSEMIDE
  14. BIPERIDYS [Concomitant]
     Active Substance: DOMPERIDONE

REACTIONS (5)
  - Hallucination, visual [Recovered/Resolved]
  - Confusional state [Recovered/Resolved]
  - Fall [Recovered/Resolved]
  - Gait disturbance [Recovered/Resolved]
  - Somnolence [Recovered/Resolved]

NARRATIVE: CASE EVENT DATE: 201409
